FAERS Safety Report 20747073 (Version 10)
Quarter: 2023Q4

REPORT INFORMATION
  Report Type: Spontaneous
  Country: US (occurrence: US)
  Receive Date: 20220425
  Receipt Date: 20231122
  Transmission Date: 20240110
  Serious: Yes (Death, Other)
  Sender: FDA-Public Use
  Company Number: US-PFIZER INC-202200321854

PATIENT
  Age: 72 Year
  Sex: Female
  Weight: 72.12 kg

DRUGS (6)
  1. IBRANCE [Suspect]
     Active Substance: PALBOCICLIB
     Indication: Breast cancer metastatic
     Dosage: 125 MG
     Dates: start: 20210524
  2. IBRANCE [Suspect]
     Active Substance: PALBOCICLIB
     Dosage: GLASS OF WATER THREE WEEKS AND OFF A WEEK
     Dates: start: 202105
  3. IBRANCE [Suspect]
     Active Substance: PALBOCICLIB
     Dosage: 2 WEEKS ON, 2 WEEKS OFF CYCLE
  4. IBRANCE [Suspect]
     Active Substance: PALBOCICLIB
     Dosage: TAKE 1 TABLET DAILY, DAYS 1-21 FOLLOWED BY 7 DAYS OFF
     Route: 048
     Dates: start: 20221228
  5. IBRANCE [Suspect]
     Active Substance: PALBOCICLIB
     Dosage: TAKE 1 TABLET DAILY. TAKE ON DAYS 1 THROUGH 21 (FOLLOWED BY 7 DAYS OFF TREATMENT) WITH FOOD
     Route: 048
  6. FULVESTRANT [Concomitant]
     Active Substance: FULVESTRANT
     Dosage: UNK

REACTIONS (9)
  - Death [Fatal]
  - Full blood count decreased [Unknown]
  - Thrombocytopenia [Unknown]
  - Neoplasm progression [Unknown]
  - Off label use [Unknown]
  - Product dispensing error [Unknown]
  - Peripheral swelling [Unknown]
  - Dyspnoea [Unknown]
  - Lymphoedema [Unknown]

NARRATIVE: CASE EVENT DATE: 20210101
